FAERS Safety Report 8075817-5 (Version None)
Quarter: 2012Q1

REPORT INFORMATION
  Report Type: 
  Country: None (occurrence: None)
  Receive Date: 20120127
  Receipt Date: 20120113
  Transmission Date: 20120608
  Serious: Yes (Hospitalization)
  Sender: FDA-Public Use
  Company Number: JP-CTI_01437_2012

PATIENT
  Age: 92 Year
  Sex: Female

DRUGS (4)
  1. EPRAZINONE HYDROCHLORIDE [Concomitant]
     Indication: PRODUCT USED FOR UNKNOWN INDICATION
     Dosage: DAILY DOSE 60 MG
     Route: 048
     Dates: start: 20111219, end: 20111221
  2. L-CARBOCISTEINE [Concomitant]
     Indication: PRODUCT USED FOR UNKNOWN INDICATION
     Dosage: DAILY DOSE 750 MG
     Route: 048
     Dates: start: 20111219, end: 20111221
  3. MEIACT MS - CEFDITOREN PIVOXIL [Suspect]
     Indication: BRONCHITIS
     Dosage: DAILY DOSE 300 MG
     Route: 048
     Dates: start: 20111219, end: 20111221
  4. SALICYLAMIDE/ACET/ANHYDROUS CAFF/PROMETHAZINE METHYLENEDISALICYLATE [Concomitant]
     Indication: PRODUCT USED FOR UNKNOWN INDICATION
     Dosage: DAILY DOSE 3 G
     Route: 048
     Dates: start: 20111219, end: 20111221

REACTIONS (3)
  - LIVER DISORDER [None]
  - HEPATIC ENZYME INCREASED [None]
  - FATIGUE [None]
